FAERS Safety Report 23795462 (Version 2)
Quarter: 2024Q4

REPORT INFORMATION
  Report Type: Spontaneous
  Country: BR (occurrence: BR)
  Receive Date: 20240429
  Receipt Date: 20241113
  Transmission Date: 20250114
  Serious: Yes (Hospitalization, Disabling)
  Sender: ELI LILLY AND COMPANY
  Company Number: BR-ELI_LILLY_AND_COMPANY-BR202404014855

PATIENT
  Sex: Male

DRUGS (7)
  1. BASAGLAR [Suspect]
     Active Substance: INSULIN GLARGINE
     Indication: Product used for unknown indication
     Dosage: 36 INTERNATIONAL UNIT, UNKNOWN
     Route: 065
     Dates: start: 2020
  2. BASAGLAR [Suspect]
     Active Substance: INSULIN GLARGINE
     Indication: Product used for unknown indication
     Dosage: 36 INTERNATIONAL UNIT, UNKNOWN
     Route: 065
     Dates: start: 2020
  3. BASAGLAR [Suspect]
     Active Substance: INSULIN GLARGINE
     Indication: Product used for unknown indication
     Dosage: 36 INTERNATIONAL UNIT, UNKNOWN
     Route: 065
     Dates: start: 2020
  4. BASAGLAR [Suspect]
     Active Substance: INSULIN GLARGINE
     Indication: Product used for unknown indication
     Dosage: 36 INTERNATIONAL UNIT, UNKNOWN
     Route: 065
     Dates: start: 2020
  5. BASAGLAR [Suspect]
     Active Substance: INSULIN GLARGINE
     Indication: Product used for unknown indication
     Dosage: 36 INTERNATIONAL UNIT, UNKNOWN
     Route: 065
     Dates: start: 2020
  6. BASAGLAR [Suspect]
     Active Substance: INSULIN GLARGINE
     Indication: Product used for unknown indication
     Dosage: 36 INTERNATIONAL UNIT, UNKNOWN
     Route: 065
     Dates: start: 2020
  7. BASAGLAR [Suspect]
     Active Substance: INSULIN GLARGINE
     Indication: Product used for unknown indication
     Dosage: 36 INTERNATIONAL UNIT, UNKNOWN
     Route: 065
     Dates: start: 2020

REACTIONS (4)
  - COVID-19 [Unknown]
  - Gait inability [Unknown]
  - Diabetes mellitus inadequate control [Unknown]
  - Product storage error [Unknown]
